FAERS Safety Report 7916670-7 (Version None)
Quarter: 2011Q4

REPORT INFORMATION
  Report Type: 
  Country: None (occurrence: None)
  Receive Date: 20111116
  Receipt Date: 20111104
  Transmission Date: 20120403
  Serious: Yes (Hospitalization)
  Sender: FDA-Public Use
  Company Number: US-BAYER-201035052NA

PATIENT
  Age: 29 Year
  Sex: Female

DRUGS (6)
  1. GLIPIZIDE [Concomitant]
     Dosage: 5 MG, QD
     Route: 048
  2. METOCLOPRAMIDE [Concomitant]
     Dosage: 10 MG, TID
     Route: 048
  3. DROSPIRENONE AND ETHINYL ESTRADIOL [Suspect]
     Dosage: UNK
     Route: 048
     Dates: start: 20080701, end: 20090301
  4. LISINOPRIL [Concomitant]
     Dosage: 40 MG, QD
     Route: 048
  5. YASMIN [Suspect]
     Dosage: UNK
     Dates: start: 20060901, end: 20080601
  6. GLUCOPHAGE [Concomitant]
     Dosage: 500 MG, QD
     Route: 048

REACTIONS (9)
  - CONSTIPATION [None]
  - SCAR [None]
  - CHOLECYSTECTOMY [None]
  - FLATULENCE [None]
  - DYSPEPSIA [None]
  - DIARRHOEA [None]
  - DEPRESSION [None]
  - ABDOMINAL DISTENSION [None]
  - ANXIETY [None]
